FAERS Safety Report 7206701-4 (Version None)
Quarter: 2011Q1

REPORT INFORMATION
  Report Type: 
  Country: None (occurrence: None)
  Receive Date: 20110103
  Receipt Date: 20101228
  Transmission Date: 20110831
  Serious: No
  Sender: FDA-Public Use
  Company Number: US-PFIZER INC-2010180100

PATIENT
  Age: 21 Year
  Sex: Male
  Weight: 95 kg

DRUGS (3)
  1. PROTONIX [Suspect]
     Indication: GASTROOESOPHAGEAL REFLUX DISEASE
     Dosage: 40 MG, 1X/DAY
     Dates: start: 20100501
  2. CELEXA [Concomitant]
     Dosage: UNK
  3. VALIUM [Concomitant]
     Dosage: UNK

REACTIONS (1)
  - DRUG SCREEN POSITIVE [None]
